FAERS Safety Report 12083039 (Version 3)
Quarter: 2016Q2

REPORT INFORMATION
  Report Type: Spontaneous
  Country: US (occurrence: US)
  Receive Date: 20160217
  Receipt Date: 20160425
  Transmission Date: 20160815
  Serious: No
  Sender: FDA-Public Use
  Company Number: US-PFIZER INC-2016095657

PATIENT
  Age: 69 Year
  Sex: Female

DRUGS (2)
  1. ESTRING [Suspect]
     Active Substance: ESTRADIOL
     Indication: VULVOVAGINAL DRYNESS
     Dosage: 2 MG, EVERY 3 MONTHS (ONE PER VAGINA OF 3 MONTHS)
     Route: 067
     Dates: start: 20150121
  2. ESTRING [Suspect]
     Active Substance: ESTRADIOL
     Indication: ATROPHIC VULVOVAGINITIS

REACTIONS (4)
  - Vulvovaginal discomfort [Unknown]
  - Product quality issue [Unknown]
  - Vulvovaginal burning sensation [Recovered/Resolved]
  - Contraindicated drug administered [Unknown]
